FAERS Safety Report 22104072 (Version 2)
Quarter: 2023Q2

REPORT INFORMATION
  Report Type: Spontaneous
  Country: US (occurrence: US)
  Receive Date: 20230316
  Receipt Date: 20230505
  Transmission Date: 20230722
  Serious: No
  Sender: FDA-Public Use
  Company Number: US-SA-SAC20230315000284

PATIENT
  Sex: Male
  Weight: 86.18 kg

DRUGS (22)
  1. DUPIXENT [Suspect]
     Active Substance: DUPILUMAB
     Indication: Asthma
     Dosage: 300 MG, QOW
     Route: 058
  2. DUPIXENT [Suspect]
     Active Substance: DUPILUMAB
     Indication: Thrombocytopenia
  3. TRAZODONE HCL [Concomitant]
     Active Substance: TRAZODONE HYDROCHLORIDE
  4. DIETARY SUPPLEMENT [Concomitant]
     Active Substance: DIETARY SUPPLEMENT
  5. FISH OIL [Concomitant]
     Active Substance: FISH OIL
  6. PROMETHAZINE HYDROCHLORIDE [Concomitant]
     Active Substance: PROMETHAZINE HYDROCHLORIDE
  7. ZANAFLEX [Concomitant]
     Active Substance: TIZANIDINE HYDROCHLORIDE
  8. SELENIUM [Concomitant]
     Active Substance: SELENIUM
  9. VITAMIN C [Concomitant]
     Active Substance: ASCORBIC ACID
  10. GINGER ROOT [ZINGIBER OFFICINALE RHIZOME] [Concomitant]
  11. XYZAL [Concomitant]
     Active Substance: LEVOCETIRIZINE DIHYDROCHLORIDE
  12. HYDROCHLOROTHIAZIDE [Concomitant]
     Active Substance: HYDROCHLOROTHIAZIDE
  13. GABAPENTIN [Concomitant]
     Active Substance: GABAPENTIN
  14. VITAMIN D3 [Concomitant]
     Active Substance: CHOLECALCIFEROL
  15. AZITHROMYCIN [Concomitant]
     Active Substance: AZITHROMYCIN
  16. FINASTERIDE [Concomitant]
     Active Substance: FINASTERIDE
  17. FAMOTIDINE [Concomitant]
     Active Substance: FAMOTIDINE
  18. CELECOXIB [Concomitant]
     Active Substance: CELECOXIB
  19. CELEBREX [Concomitant]
     Active Substance: CELECOXIB
  20. ADVAIR HFA [Concomitant]
     Active Substance: FLUTICASONE PROPIONATE\SALMETEROL XINAFOATE
  21. SINGULAIR [Concomitant]
     Active Substance: MONTELUKAST SODIUM
  22. ALBUTEROL SULFATE [Concomitant]
     Active Substance: ALBUTEROL SULFATE

REACTIONS (2)
  - Arthritis [Unknown]
  - Product use in unapproved indication [Unknown]
